FAERS Safety Report 15019703 (Version 1)
Quarter: 2018Q2

REPORT INFORMATION
  Report Type: Spontaneous
  Country: DE (occurrence: DE)
  Receive Date: 20180618
  Receipt Date: 20180618
  Transmission Date: 20180711
  Serious: Yes (Hospitalization)
  Sender: FDA-Public Use
  Company Number: DE-TEVA-2018-DE-908605

PATIENT
  Age: 76 Year
  Sex: Female
  Weight: 65 kg

DRUGS (16)
  1. OMEPRAZOL [Concomitant]
     Active Substance: OMEPRAZOLE
     Dosage: 1-0-0-0
     Route: 048
  2. METAMIZOL [Concomitant]
     Active Substance: METAMIZOLE SODIUM
     Dosage: 30 GTT, 1-1-1-0
     Route: 048
  3. ARCOXIA [Suspect]
     Active Substance: ETORICOXIB
     Dosage: 1-1-1-1
     Route: 048
  4. KEPPRA [Concomitant]
     Active Substance: LEVETIRACETAM
     Dosage: 0.5-0-0.5-0
     Route: 048
  5. NORSPAN 30MIKROGRAMM/H [Concomitant]
     Dosage: EVERY 7 DAYS, PATCH TRANSDERMALLY
     Route: 062
  6. VIGANTOLETTEN 1000I.E. [Concomitant]
     Dosage: 1000 IE, 1-0-0-0
     Route: 048
  7. MADOPAR DEPOT [Concomitant]
     Active Substance: BENSERAZIDE HYDROCHLORIDE\LEVODOPA
     Dosage: 100|25 MG, 0-0-0-2,
     Route: 048
  8. VENLAFAXIN [Concomitant]
     Active Substance: VENLAFAXINE HYDROCHLORIDE
     Dosage: 1-0-0-0
     Route: 048
  9. ACETYLSALICYLSAEURE [Suspect]
     Active Substance: ASPIRIN
     Dosage: 1-0-0-0
     Route: 048
  10. PRAMIPEXOL [Concomitant]
     Active Substance: PRAMIPEXOLE
     Dosage: 1-1-1-0
     Route: 048
  11. MADOPAR 125 [Concomitant]
     Dosage: 100|25 MG, 1-1-1-0, TABLETTEN
     Route: 048
  12. LEVOTHYROXINE SODIUM. [Concomitant]
     Active Substance: LEVOTHYROXINE SODIUM
     Dosage: 1-0-0-0
     Route: 048
  13. ALENDRONATE SODIUM. [Suspect]
     Active Substance: ALENDRONATE SODIUM
     Dosage: 1-0-0-0
     Route: 048
  14. SEVREDOL 10MG [Concomitant]
     Dosage: NEED
     Route: 048
  15. MIRTAZAPIN [Concomitant]
     Active Substance: MIRTAZAPINE
     Dosage: 15 MG, 0-0-0-0.25, TABLETTEN
     Route: 048
  16. BISOPROLOL [Concomitant]
     Active Substance: BISOPROLOL
     Dosage: 1-0-1-0
     Route: 048

REACTIONS (6)
  - Haematochezia [Unknown]
  - Abdominal pain [Unknown]
  - Pain [Unknown]
  - Nausea [Unknown]
  - Haematemesis [Unknown]
  - Drug administration error [Unknown]
